FAERS Safety Report 8559824-1 (Version None)
Quarter: 2012Q3

REPORT INFORMATION
  Report Type: 
  Country: None (occurrence: None)
  Receive Date: 20120802
  Receipt Date: 20120731
  Transmission Date: 20120928
  Serious: Yes (Other)
  Sender: FDA-Public Use
  Company Number: SG-PFIZER INC-2012184677

PATIENT
  Age: 45 Year
  Sex: Female
  Weight: 51.4 kg

DRUGS (3)
  1. GRANISETRON [Concomitant]
     Indication: PREMEDICATION
     Dosage: 3 MG, CYCLIC
     Route: 042
     Dates: start: 20101001
  2. CARBOPLATIN [Suspect]
     Indication: BREAST CANCER
     Dosage: 600 MG, CYCLIC
     Route: 042
     Dates: start: 20101022, end: 20101022
  3. DOCETAXEL [Suspect]
     Indication: BREAST CANCER
     Dosage: 110 MG, CYCLIC
     Route: 042
     Dates: start: 20101022, end: 20101022

REACTIONS (4)
  - VOMITING [None]
  - DYSPNOEA [None]
  - COUGH [None]
  - RASH [None]
